FAERS Safety Report 8278413-X (Version None)
Quarter: 2012Q2

REPORT INFORMATION
  Report Type: 
  Country: None (occurrence: None)
  Receive Date: 20120412
  Receipt Date: 20120214
  Transmission Date: 20120825
  Serious: No
  Sender: FDA-Public Use
  Company Number: US-ASTRAZENECA-2010SE31605

PATIENT
  Age: 69 Year
  Sex: Female

DRUGS (2)
  1. NEXIUM [Suspect]
     Route: 048
  2. GINGERALE [Concomitant]

REACTIONS (5)
  - BLADDER DISORDER [None]
  - DRUG DOSE OMISSION [None]
  - MICTURITION URGENCY [None]
  - MALAISE [None]
  - SWELLING FACE [None]
